FAERS Safety Report 15910050 (Version 1)
Quarter: 2019Q1

REPORT INFORMATION
  Report Type: Spontaneous
  Country: JP (occurrence: JP)
  Receive Date: 20190204
  Receipt Date: 20190204
  Transmission Date: 20190417
  Serious: Yes (Hospitalization)
  Sender: FDA-Public Use
  Company Number: JP-NOVOPROD-611276

PATIENT
  Sex: Female
  Weight: 4.18 kg

DRUGS (4)
  1. TRESIBA [Suspect]
     Active Substance: INSULIN DEGLUDEC
     Indication: TYPE 1 DIABETES MELLITUS
     Dosage: UNK
     Route: 064
  2. TRESIBA [Suspect]
     Active Substance: INSULIN DEGLUDEC
     Dosage: 33 UNITS
     Route: 064
  3. NOVORAPID [Suspect]
     Active Substance: INSULIN ASPART
     Indication: TYPE 1 DIABETES MELLITUS
     Dosage: UNK
     Route: 064
  4. NOVORAPID [Suspect]
     Active Substance: INSULIN ASPART
     Dosage: 33 UNITS
     Route: 064

REACTIONS (5)
  - Foetal exposure during pregnancy [Recovered/Resolved]
  - Shoulder dystocia [Recovered/Resolved]
  - Hypoglycaemia neonatal [Recovered/Resolved]
  - Infantile apnoea [Recovered/Resolved]
  - Macrosomia [Unknown]

NARRATIVE: CASE EVENT DATE: 20161129
